FAERS Safety Report 6356162-2 (Version None)
Quarter: 2009Q3

REPORT INFORMATION
  Report Type: 
  Country: None (occurrence: None)
  Receive Date: 20090915
  Receipt Date: 20090908
  Transmission Date: 20100115
  Serious: Yes (Other)
  Sender: FDA-Public Use
  Company Number: BR-BRISTOL-MYERS SQUIBB COMPANY-14775332

PATIENT
  Age: 73 Year
  Sex: Male

DRUGS (5)
  1. APROVEL TABS 300 MG [Suspect]
     Dosage: 1 DF=-1 TAB AT 8 AM
     Route: 048
     Dates: start: 20090806
  2. ATENOLOL [Concomitant]
     Dosage: 1 DF=1 TAB AT 8 AM ATENOLOL 25 MG
  3. ARTROLIVE [Concomitant]
     Indication: OSTEOARTHRITIS
     Dosage: ARTROLIVE 500 MG 1DF=1 TAB IN AFTERNOON FORMULATION: TABS
  4. GABAPENTIN [Concomitant]
     Indication: NEUROPATHY PERIPHERAL
     Dosage: GABAPENTIN 300 MG
  5. GARDENAL [Concomitant]
     Indication: NERVOUS SYSTEM DISORDER
     Dosage: GARDENAL 300 MG

REACTIONS (3)
  - ARRHYTHMIA [None]
  - BLOOD PRESSURE INCREASED [None]
  - INTRAOCULAR PRESSURE INCREASED [None]
